FAERS Safety Report 7416377-9 (Version None)
Quarter: 2011Q2

REPORT INFORMATION
  Report Type: 
  Country: None (occurrence: None)
  Receive Date: 20110414
  Receipt Date: 20110406
  Transmission Date: 20111010
  Serious: Yes (Other)
  Sender: FDA-Public Use
  Company Number: US-US-EMD SERONO, INC.-7045065

PATIENT
  Sex: Female
  Weight: 57 kg

DRUGS (6)
  1. REBIF [Suspect]
     Route: 058
     Dates: start: 20090101
  2. DICYCLOMINE [Concomitant]
     Dates: start: 20100112
  3. ACETAMINOPHEN [Concomitant]
     Indication: PREMEDICATION
     Dates: start: 20091209
  4. REBIF [Suspect]
     Indication: MULTIPLE SCLEROSIS
     Route: 058
     Dates: start: 20081210, end: 20090101
  5. FAMOTIDINE [Concomitant]
     Dates: start: 20091209
  6. LOCOID LIPOCREAM [Concomitant]
     Dates: start: 20110111

REACTIONS (8)
  - HEAD INJURY [None]
  - DRY SKIN [None]
  - BENIGN NEOPLASM OF THYROID GLAND [None]
  - FULL BLOOD COUNT ABNORMAL [None]
  - HYPOAESTHESIA [None]
  - PLATELET COUNT DECREASED [None]
  - THYROID CYST [None]
  - INJECTION SITE ERYTHEMA [None]
